FAERS Safety Report 19453456 (Version 1)
Quarter: 2021Q2

REPORT INFORMATION
  Report Type: Spontaneous
  Country: FR (occurrence: FR)
  Receive Date: 20210623
  Receipt Date: 20210623
  Transmission Date: 20210717
  Serious: Yes (Other)
  Sender: FDA-Public Use
  Company Number: FR-ACCORD-228960

PATIENT
  Age: 72 Year
  Sex: Male
  Weight: 101 kg

DRUGS (1)
  1. CARBOPLATIN ACCORD [Suspect]
     Active Substance: CARBOPLATIN
     Indication: LUNG ADENOCARCINOMA
     Route: 042
     Dates: start: 20210224, end: 20210224

REACTIONS (1)
  - Prinzmetal angina [Recovered/Resolved]
